FAERS Safety Report 24607894 (Version 1)
Quarter: 2024Q4

REPORT INFORMATION
  Report Type: Spontaneous
  Country: US (occurrence: None)
  Receive Date: 20241112
  Receipt Date: 20241112
  Transmission Date: 20250115
  Serious: Yes (Death)
  Sender: Public
  Company Number: None

PATIENT
  Sex: Female

DRUGS (11)
  1. CIMZIA [Suspect]
     Active Substance: CERTOLIZUMAB PEGOL
     Dosage: FREQUENCY : EVERY OTHER WEEK;?
     Route: 058
     Dates: start: 20210721
  2. ALLERGY RELF [Concomitant]
  3. AMOXICILLIN [Concomitant]
     Active Substance: AMOXICILLIN
  4. ATORVASTATIN [Concomitant]
     Active Substance: ATORVASTATIN
  5. CIMZIA PREFL KIT [Concomitant]
  6. CORTISONE CRE [Concomitant]
  7. DORYX [Concomitant]
     Active Substance: DOXYCYCLINE HYCLATE
  8. IBUPROFEN [Concomitant]
     Active Substance: IBUPROFEN
  9. SHINGRIX [Concomitant]
     Active Substance: RECOMBINANT VARICELLA ZOSTER VIRUS (VZV) GLYCOPROTEIN E
  10. SIMPONI ARIA [Concomitant]
     Active Substance: GOLIMUMAB
  11. TRAMADOL HCL [Concomitant]

REACTIONS (1)
  - Death [None]
